FAERS Safety Report 4928064-7 (Version None)
Quarter: 2006Q1

REPORT INFORMATION
  Report Type: 
  Country: None (occurrence: None)
  Receive Date: 20060223
  Receipt Date: 20060210
  Transmission Date: 20060701
  Serious: Yes (Hospitalization)
  Sender: FDA-Public Use
  Company Number: 2006015724

PATIENT
  Age: 65 Year
  Sex: Female
  Weight: 95 kg

DRUGS (5)
  1. LYRICA [Suspect]
     Indication: DIABETIC NEUROPATHY
     Dosage: ORAL
     Route: 048
     Dates: start: 20060105, end: 20060106
  2. TRAMADOL HCL [Concomitant]
  3. NOVALGIN (METAMIZOLE SODIUM) [Concomitant]
  4. MARCUMAR [Concomitant]
  5. METFORMIN HCL [Concomitant]

REACTIONS (10)
  - BLISTER [None]
  - C-REACTIVE PROTEIN INCREASED [None]
  - CHOLESTASIS [None]
  - DRUG ERUPTION [None]
  - DRUG TOXICITY [None]
  - EPIDERMOLYSIS [None]
  - GENERAL PHYSICAL HEALTH DETERIORATION [None]
  - LIVER FUNCTION TEST ABNORMAL [None]
  - PROTHROMBIN TIME PROLONGED [None]
  - SKIN EXFOLIATION [None]
